FAERS Safety Report 5467960-1 (Version None)
Quarter: 2007Q3

REPORT INFORMATION
  Report Type: 
  Country: None (occurrence: None)
  Receive Date: 20070926
  Receipt Date: 20070918
  Transmission Date: 20080115
  Serious: Yes (Hospitalization)
  Sender: FDA-Public Use
  Company Number: RU-JNJFOC-20060806386

PATIENT
  Sex: Male
  Weight: 67 kg

DRUGS (1)
  1. INFLIXIMAB [Suspect]
     Indication: ANKYLOSING SPONDYLITIS
     Route: 042

REACTIONS (2)
  - PULMONARY TUBERCULOSIS [None]
  - TUBERCULOSIS [None]
